FAERS Safety Report 4716878-8 (Version None)
Quarter: 2005Q3

REPORT INFORMATION
  Report Type: 
  Country: None (occurrence: None)
  Receive Date: 20050714
  Receipt Date: 20050627
  Transmission Date: 20060218
  Serious: Yes (Other)
  Sender: FDA-Public Use
  Company Number: 8010920

PATIENT
  Age: 16 Year
  Sex: Female

DRUGS (3)
  1. METADATE CD [Suspect]
     Indication: ATTENTION DEFICIT/HYPERACTIVITY DISORDER
     Dates: start: 20050501, end: 20050501
  2. WELLBUTRIN SR [Concomitant]
  3. WELLBUTRIN [Concomitant]

REACTIONS (1)
  - RHABDOMYOLYSIS [None]
